FAERS Safety Report 11663556 (Version 1)
Quarter: 2015Q4

REPORT INFORMATION
  Report Type: Spontaneous
  Country: US (occurrence: None)
  Receive Date: 20151026
  Receipt Date: 20151026
  Transmission Date: 20160304
  Serious: No
  Sender: FDA-Public Use
  Company Number: None

PATIENT
  Age: 39 Year
  Sex: Female
  Weight: 58.97 kg

DRUGS (5)
  1. ZOLOFT [Concomitant]
     Active Substance: SERTRALINE HYDROCHLORIDE
  2. PERCOCET [Concomitant]
     Active Substance: ACETAMINOPHEN\OXYCODONE HYDROCHLORIDE
  3. KLONOPIN [Concomitant]
     Active Substance: CLONAZEPAM
  4. GABAPENTIN 100 MG [Suspect]
     Active Substance: GABAPENTIN
     Indication: NECK PAIN
     Dosage: 2 NIGHTS; 3 PILLS
     Route: 048
  5. SYNTHROID [Concomitant]
     Active Substance: LEVOTHYROXINE SODIUM

REACTIONS (4)
  - Paraesthesia [None]
  - Drug ineffective [None]
  - Hypoaesthesia [None]
  - Fear [None]

NARRATIVE: CASE EVENT DATE: 20151024
